FAERS Safety Report 4471957-8 (Version None)
Quarter: 2004Q4

REPORT INFORMATION
  Report Type: 
  Country: None (occurrence: None)
  Receive Date: 20041007
  Receipt Date: 20040928
  Transmission Date: 20050328
  Serious: Yes (Other)
  Sender: FDA-Public Use
  Company Number: AU-GDP-0411399

PATIENT
  Age: 75 Year
  Sex: Female
  Weight: 60 kg

DRUGS (8)
  1. ROZEX [Suspect]
     Indication: ROSACEA
     Dosage: 1 APP QD TP
     Route: 061
     Dates: end: 20040701
  2. ACETAMINOPHEN W/ CODEINE [Concomitant]
  3. CELECOXIB [Concomitant]
  4. PRAVASTATIN SODIUM [Concomitant]
  5. ATENOLOL [Concomitant]
  6. RANITIDINE SODIUM [Concomitant]
  7. CALCITRIOL [Concomitant]
  8. CLOPIDOGREL SULPHATE [Concomitant]

REACTIONS (1)
  - SQUAMOUS CELL CARCINOMA [None]
